FAERS Safety Report 8237885-7 (Version None)
Quarter: 2012Q1

REPORT INFORMATION
  Report Type: 
  Country: None (occurrence: None)
  Receive Date: 20120323
  Receipt Date: 20120315
  Transmission Date: 20120608
  Serious: Yes (Death)
  Sender: FDA-Public Use
  Company Number: 2012SP001571

PATIENT
  Age: 21 Year
  Sex: Female
  Weight: 43.1 kg

DRUGS (6)
  1. SEROQUEL [Concomitant]
  2. FLUNITRAZEPAM [Concomitant]
  3. ABILIFY [Concomitant]
  4. REMERON [Suspect]
     Indication: DEPRESSION
     Dosage: 15;30;45 MG, QD, PO
     Route: 048
     Dates: start: 20111005, end: 20111006
  5. REMERON [Suspect]
     Indication: DEPRESSION
     Dosage: 15;30;45 MG, QD, PO
     Route: 048
     Dates: start: 20111014, end: 20120103
  6. REMERON [Suspect]
     Indication: DEPRESSION
     Dosage: 15;30;45 MG, QD, PO
     Route: 048
     Dates: start: 20111007, end: 20111013

REACTIONS (3)
  - FAMILY STRESS [None]
  - FALL [None]
  - COMPLETED SUICIDE [None]
